FAERS Safety Report 6052533-2 (Version None)
Quarter: 2009Q1

REPORT INFORMATION
  Report Type: 
  Country: None (occurrence: None)
  Receive Date: 20090121
  Receipt Date: 20090112
  Transmission Date: 20090719
  Serious: Yes (Hospitalization)
  Sender: FDA-Public Use
  Company Number: GXKR2009DE00592

PATIENT
  Age: 70 Year
  Sex: Male
  Weight: 91.5 kg

DRUGS (15)
  1. ALLOPURINOL [Suspect]
     Indication: HYPERURICAEMIA
     Dosage: 50 MG, QD, ORAL
     Route: 048
  2. XIPAMIDE               (XIPAMIDE) TABLET [Suspect]
     Indication: HYPERTENSION
     Dosage: 20 MG, QD, ORAL
     Route: 048
     Dates: start: 20080625
  3. CARVEDILOL             (CARVEDILOL) TABLET [Suspect]
     Dosage: 12.5 MG, QD, ORAL
     Route: 048
  4. ASS 100 HEXAL            (ACETYLSALICYLIC ACID) TABLET [Suspect]
     Indication: PROPHYLAXIS
     Dosage: 100 MG, QD
     Dates: start: 20000101
  5. TOREM           (TORASEMIDE) TABLET [Suspect]
     Indication: HYPERTENSION
     Dosage: 20 MG, 3 IN DAY, ORAL
     Route: 048
  6. PLAVIX [Suspect]
     Indication: PROPHYLAXIS
     Dosage: 75 MEQ/KG, QD, ORAL
     Route: 048
     Dates: start: 20060401, end: 20080720
  7. PANTOPRAZOLE SODIUM [Suspect]
     Indication: HELICOBACTER GASTRITIS
     Dosage: 40 MG, 2 IN DAY, ORAL
     Route: 048
  8. LOCOL      (FLUVASTATIN SODIUM) TABLET [Suspect]
     Indication: HYPERCHOLESTEROLAEMIA
     Dosage: 20 MG, QD
  9. EINSALPHA       (ALFACALCIDOL) TABLET [Suspect]
     Indication: HYPERPARATHYROIDISM
     Dosage: 0.25 UG, QD, ORAL
     Route: 048
     Dates: start: 20080520
  10. EBRANTIL     (URAPIDIL) TABLET [Suspect]
     Indication: HYPERTENSION
     Dosage: 60 MG, 2 IN DAY, ORAL
     Route: 048
  11. DIOVAN [Suspect]
     Indication: HYPERTENSION
     Dosage: 160 MG, QD
  12. DIGITOXIN TAB [Suspect]
     Indication: CARDIAC FAILURE
     Dosage: 0.07 MG, QD, ORAL
     Route: 048
     Dates: start: 20080625, end: 20080720
  13. ACETOLYT (CALCIUM CITRATE, SODIUM CITRATE) SOLUBLE TABLET [Suspect]
     Indication: ACIDOSIS
     Dosage: 2.5 G, QD, ORAL
     Route: 048
     Dates: end: 20080720
  14. NEORECORMON                    (EPOETIN BETA) INJECTION [Concomitant]
  15. MOXONIDINE     (MOXONIDINE) TABLET [Concomitant]

REACTIONS (6)
  - ANAEMIA [None]
  - CARDIOACTIVE DRUG LEVEL INCREASED [None]
  - GENERAL PHYSICAL HEALTH DETERIORATION [None]
  - MALAISE [None]
  - NAUSEA [None]
  - RENAL IMPAIRMENT [None]
